FAERS Safety Report 7524731-X (Version None)
Quarter: 2011Q2

REPORT INFORMATION
  Report Type: 
  Country: None (occurrence: None)
  Receive Date: 20110602
  Receipt Date: 20110602
  Transmission Date: 20111010
  Serious: No
  Sender: FDA-Public Use
  Company Number: None

PATIENT
  Age: 42 Year
  Sex: Female
  Weight: 68.0396 kg

DRUGS (1)
  1. ORPHENADRINE CITRATE TAB [Suspect]
     Indication: MUSCLE SPASMS
     Dosage: 100 MG ER 2 X A DAY PO
     Route: 048
     Dates: start: 20110519, end: 20110530

REACTIONS (1)
  - VISUAL ACUITY REDUCED [None]
